FAERS Safety Report 10434534 (Version 1)
Quarter: 2014Q3

REPORT INFORMATION
  Report Type: Report from Study
  Country: FR (occurrence: FR)
  Receive Date: 20140905
  Receipt Date: 20140905
  Transmission Date: 20150326
  Serious: Yes (Hospitalization)
  Sender: FDA-Public Use
  Company Number: FR-TEVA-507009USA

PATIENT
  Age: 56 Year
  Sex: Male

DRUGS (8)
  1. ZOMETA [Concomitant]
     Active Substance: ZOLEDRONIC ACID
     Indication: PRODUCT USED FOR UNKNOWN INDICATION
     Dosage: UNK UNK, UNKNOWN FREQ.
     Route: 065
     Dates: start: 201402, end: 201402
  2. BENDAMUSTINE HYROCHLORIDE [Suspect]
     Active Substance: BENDAMUSTINE HYDROCHLORIDE
     Indication: PLASMA CELL MYELOMA
     Dosage: UNK, CYCLIC
     Route: 042
     Dates: start: 20130926, end: 20131024
  3. PREDNISONE. [Suspect]
     Active Substance: PREDNISONE
     Dosage: UNK, CYCLIC
     Route: 065
     Dates: start: 20131218, end: 20131219
  4. PREDNISONE. [Suspect]
     Active Substance: PREDNISONE
     Indication: PLASMA CELL MYELOMA
     Dosage: UNK, CYCLIC
     Route: 065
     Dates: start: 20130926, end: 20131024
  5. NEORECORMON [Concomitant]
     Active Substance: ERYTHROPOIETIN
     Indication: PRODUCT USED FOR UNKNOWN INDICATION
     Dosage: UNK UNK, UNKNOWN FREQ.
     Route: 065
     Dates: start: 20131024
  6. BENDAMUSTINE HYROCHLORIDE [Suspect]
     Active Substance: BENDAMUSTINE HYDROCHLORIDE
     Dosage: UNK, CYCLIC
     Route: 065
     Dates: start: 20131120, end: 20131217
  7. BENDAMUSTINE HYROCHLORIDE [Suspect]
     Active Substance: BENDAMUSTINE HYDROCHLORIDE
     Dosage: UNK, ONCE DAILY
     Dates: start: 20131218, end: 20131219
  8. PREDNISONE. [Suspect]
     Active Substance: PREDNISONE
     Dosage: UNK, CYCLIC
     Route: 065
     Dates: start: 20131120, end: 20131217

REACTIONS (2)
  - Fall [None]
  - Fracture [Recovered/Resolved]

NARRATIVE: CASE EVENT DATE: 20140415
